FAERS Safety Report 12297720 (Version 1)
Quarter: 2016Q2

REPORT INFORMATION
  Report Type: Report from Study
  Country: FR (occurrence: FR)
  Receive Date: 20160422
  Receipt Date: 20160422
  Transmission Date: 20160815
  Serious: Yes (Hospitalization)
  Sender: FDA-Public Use
  Company Number: FR-BIOGEN-2012BI015523

PATIENT
  Age: 33 Year
  Sex: Male

DRUGS (5)
  1. AVONEX [Suspect]
     Active Substance: INTERFERON BETA-1A
     Route: 065
     Dates: end: 20130617
  2. VALDOXAN [Concomitant]
     Active Substance: AGOMELATINE
     Indication: DEPRESSION
     Route: 065
  3. AVONEX [Suspect]
     Active Substance: INTERFERON BETA-1A
     Indication: MULTIPLE SCLEROSIS
     Route: 030
     Dates: start: 20111006
  4. AVONEX [Suspect]
     Active Substance: INTERFERON BETA-1A
     Route: 065
     Dates: end: 20130924
  5. ZYPREXA [Concomitant]
     Active Substance: OLANZAPINE
     Indication: DEPRESSION
     Route: 065

REACTIONS (7)
  - Multiple sclerosis relapse [Not Recovered/Not Resolved]
  - Disability [Unknown]
  - Influenza like illness [Unknown]
  - Multiple sclerosis [Unknown]
  - Ataxia [Unknown]
  - Drug ineffective [Unknown]
  - Paraparesis [Unknown]

NARRATIVE: CASE EVENT DATE: 20120228
